FAERS Safety Report 8872277 (Version 1)
Quarter: 2012Q4

REPORT INFORMATION
  Report Type: 
  Country: US (occurrence: US)
  Receive Date: 20121026
  Receipt Date: 20121026
  Transmission Date: 20130627
  Serious: No
  Sender: FDA-Public Use
  Company Number: US-AMGEN-USASP2012051735

PATIENT
  Age: 51 Year
  Sex: Female

DRUGS (2)
  1. ENBREL [Suspect]
     Indication: RHEUMATOID ARTHRITIS
     Dosage: 50 mg, 2 times/wk
     Dates: start: 2003
  2. ENBREL [Suspect]
     Indication: SJOGREN^S SYNDROME

REACTIONS (3)
  - Sjogren^s syndrome [Recovered/Resolved]
  - Dental caries [Recovered/Resolved]
  - Oral infection [Recovered/Resolved]
